FAERS Safety Report 13048552 (Version 4)
Quarter: 2017Q4

REPORT INFORMATION
  Report Type: Spontaneous
  Country: JP (occurrence: JP)
  Receive Date: 20161221
  Receipt Date: 20171128
  Transmission Date: 20180320
  Serious: Yes (Death)
  Sender: FDA-Public Use
  Company Number: JP-HORIZON-BUP-0127-2016

PATIENT
  Age: 0 Year
  Sex: Male
  Weight: 2.62 kg

DRUGS (6)
  1. ARGININE [Concomitant]
     Active Substance: ARGININE
     Indication: ORNITHINE TRANSCARBAMOYLASE DEFICIENCY
     Dosage: 675 MG DAILY
     Route: 041
     Dates: start: 20160923, end: 20161018
  2. SODIUM BENZOATE [Concomitant]
     Active Substance: SODIUM BENZOATE
     Indication: ORNITHINE TRANSCARBAMOYLASE DEFICIENCY
     Dosage: 680 MG DAILY
     Dates: start: 20160923, end: 20161018
  3. BUPHENYL [Suspect]
     Active Substance: SODIUM PHENYLBUTYRATE
     Indication: ORNITHINE TRANSCARBAMOYLASE DEFICIENCY
     Dosage: 0.333G TID, INCREASED TO 0.467G TID ON 29-SEP-2016
     Route: 048
     Dates: start: 20160923, end: 20161018
  4. L-CARTIN [Concomitant]
     Active Substance: LEVOCARNITINE HYDROCHLORIDE
     Indication: ORNITHINE TRANSCARBAMOYLASE DEFICIENCY
     Dosage: 240 MG DAILY
     Route: 041
     Dates: start: 20160922, end: 20161018
  5. DOPAMINE [Concomitant]
     Active Substance: DOPAMINE\DOPAMINE HYDROCHLORIDE
     Indication: ORNITHINE TRANSCARBAMOYLASE DEFICIENCY
     Dates: start: 20160922, end: 20160927
  6. DOBUTAMINE [Concomitant]
     Active Substance: DOBUTAMINE\DOBUTAMINE HYDROCHLORIDE
     Indication: ORNITHINE TRANSCARBAMOYLASE DEFICIENCY
     Dosage: 675 MG DAILY
     Route: 041
     Dates: start: 20160922, end: 20160927

REACTIONS (2)
  - Urea cycle disorder [Fatal]
  - Disease progression [Fatal]

NARRATIVE: CASE EVENT DATE: 20161018
